FAERS Safety Report 4684275-X (Version None)
Quarter: 2005Q2

REPORT INFORMATION
  Report Type: 
  Country: None (occurrence: None)
  Receive Date: 20050531
  Receipt Date: 20050421
  Transmission Date: 20051028
  Serious: Yes (Hospitalization)
  Sender: FDA-Public Use
  Company Number: US_0411107651

PATIENT
  Age: 41 Year
  Sex: Male
  Weight: 91 kg

DRUGS (8)
  1. ZYPREXA [Suspect]
     Dosage: 5 MG DAY
     Dates: start: 19990923
  2. SYMBYAX [Suspect]
  3. ABILIFY [Concomitant]
  4. AVANDIA [Concomitant]
  5. AVANDAMET [Concomitant]
  6. AMLODIPINE [Concomitant]
  7. ATORVASTATIN CALCIUM [Concomitant]
  8. HALOPERIDOL [Concomitant]

REACTIONS (3)
  - DIABETES MELLITUS NON-INSULIN-DEPENDENT [None]
  - EPISTAXIS [None]
  - HYPERTENSION [None]
